FAERS Safety Report 10308442 (Version 1)
Quarter: 2014Q3

REPORT INFORMATION
  Report Type: Spontaneous
  Country: US (occurrence: US)
  Receive Date: 20140716
  Receipt Date: 20140716
  Transmission Date: 20150326
  Serious: No
  Sender: FDA-Public Use
  Company Number: US-BAUSCH-BL-2014-002683

PATIENT
  Age: 64 Year
  Sex: Female
  Weight: 51.76 kg

DRUGS (1)
  1. LOTEMAX [Suspect]
     Active Substance: LOTEPREDNOL ETABONATE
     Indication: UVEITIS
     Dosage: 1 DROP 4 TIMES DAILY, BOTH EYES
     Route: 047
     Dates: start: 20140505, end: 20140508

REACTIONS (4)
  - Off label use [Unknown]
  - Eyelid oedema [Recovered/Resolved]
  - Application site ulcer [Recovered/Resolved]
  - Erythema of eyelid [Recovered/Resolved]

NARRATIVE: CASE EVENT DATE: 20140505
